FAERS Safety Report 6468984-8 (Version None)
Quarter: 2009Q4

REPORT INFORMATION
  Report Type: 
  Country: None (occurrence: None)
  Receive Date: 20091203
  Receipt Date: 20091119
  Transmission Date: 20100525
  Serious: Yes (Other)
  Sender: FDA-Public Use
  Company Number: PHHY2009JP31773

PATIENT
  Sex: Female

DRUGS (12)
  1. AMN107 AMN+CAP [Suspect]
     Indication: CHRONIC MYELOID LEUKAEMIA
     Dosage: 800 MG/DAY
     Route: 048
     Dates: start: 20090225, end: 20090608
  2. AMN107 AMN+CAP [Suspect]
     Dosage: 400 MG DAILY
     Route: 048
     Dates: start: 20090623
  3. ZOVIRAX [Concomitant]
     Dosage: 800 MG, UNK
     Route: 048
     Dates: start: 20090209
  4. TAKEPRON [Concomitant]
     Dosage: 15 MG, UNK
     Route: 048
     Dates: start: 20090209
  5. DIFLUCAN [Concomitant]
     Dosage: 200 MG, UNK
     Route: 048
     Dates: start: 20090209
  6. DOGMATYL [Concomitant]
     Dosage: 150 MG, UNK
     Route: 048
     Dates: start: 20090207
  7. MAXIPIME [Concomitant]
     Dosage: UNK
     Route: 041
     Dates: start: 20090210, end: 20090216
  8. PREDONINE [Concomitant]
     Dosage: 40 MG, UNK
  9. PREDONINE [Concomitant]
     Dosage: 30 MG, UNK
     Dates: start: 20090623
  10. BAKTAR [Concomitant]
     Dosage: 4 DF, UNK
     Route: 048
  11. NEOMALLERMIN TR [Concomitant]
     Dosage: 6 MG, UNK
     Route: 048
  12. FOSCAVIR [Concomitant]
     Dosage: 7.2 MG, UNK
     Dates: start: 20090623, end: 20090630

REACTIONS (16)
  - ALANINE AMINOTRANSFERASE INCREASED [None]
  - ASPARTATE AMINOTRANSFERASE INCREASED [None]
  - BLOOD ALKALINE PHOSPHATASE INCREASED [None]
  - BLOOD GLUCOSE INCREASED [None]
  - BLOOD LACTATE DEHYDROGENASE INCREASED [None]
  - CONCOMITANT DISEASE AGGRAVATED [None]
  - ELECTROCARDIOGRAM QT PROLONGED [None]
  - GAMMA-GLUTAMYLTRANSFERASE INCREASED [None]
  - GRAFT VERSUS HOST DISEASE [None]
  - HAEMATOCRIT DECREASED [None]
  - HAEMOGLOBIN DECREASED [None]
  - HEPATIC FUNCTION ABNORMAL [None]
  - HYPERLIPIDAEMIA [None]
  - MONOCYTE PERCENTAGE INCREASED [None]
  - PLATELET COUNT DECREASED [None]
  - WHITE BLOOD CELL COUNT DECREASED [None]
